FAERS Safety Report 12381935 (Version 3)
Quarter: 2016Q2

REPORT INFORMATION
  Report Type: Spontaneous
  Country: JP (occurrence: JP)
  Receive Date: 20160518
  Receipt Date: 20160624
  Transmission Date: 20160815
  Serious: Yes (Other)
  Sender: FDA-Public Use
  Company Number: JP-B.I. PHARMACEUTICALS,INC./RIDGEFIELD-2016-BI-31207NB

PATIENT
  Age: 66 Year
  Sex: Male
  Weight: 59 kg

DRUGS (4)
  1. SOLON [Concomitant]
     Active Substance: SOFALCONE
     Indication: PRODUCT USED FOR UNKNOWN INDICATION
     Dosage: 150 MG
     Route: 048
     Dates: start: 20120810, end: 20160218
  2. TRAZENTA [Suspect]
     Active Substance: LINAGLIPTIN
     Indication: DIABETES MELLITUS
     Dosage: 5 MG
     Route: 048
     Dates: start: 20160119, end: 20160414
  3. LOXONIN [Concomitant]
     Active Substance: LOXOPROFEN SODIUM
     Indication: BACK PAIN
     Dosage: 180 MG
     Route: 048
     Dates: start: 20120810, end: 20160218
  4. CHOLEBINE [Concomitant]
     Active Substance: COLESTILAN CHLORIDE
     Indication: HYPERCHOLESTEROLAEMIA
     Dosage: 1500 MG
     Route: 048
     Dates: start: 20121005, end: 20160414

REACTIONS (1)
  - Rhabdomyolysis [Recovered/Resolved]

NARRATIVE: CASE EVENT DATE: 20160219
